FAERS Safety Report 6830612-7 (Version None)
Quarter: 2010Q3

REPORT INFORMATION
  Report Type: 
  Country: None (occurrence: None)
  Receive Date: 20100712
  Receipt Date: 20100628
  Transmission Date: 20110219
  Serious: Yes (Hospitalization, Other)
  Sender: FDA-Public Use
  Company Number: IT-JNJFOC-20100700271

PATIENT
  Sex: Male

DRUGS (4)
  1. INFLIXIMAB, RECOMBINANT [Suspect]
     Indication: RHEUMATOID ARTHRITIS
     Dosage: AT 0 2, AND 4 WEEKS; THEN EVERY 8 WEEKS
     Route: 042
  2. METHOTREXATE [Concomitant]
  3. STATINS [Concomitant]
     Indication: HYPERCHOLESTEROLAEMIA
  4. CORTICOSTEROIDS [Concomitant]
     Dosage: DOSE LESS THAN 10 MG DAILY

REACTIONS (2)
  - ARRHYTHMIA SUPRAVENTRICULAR [None]
  - MYOCARDIAL ISCHAEMIA [None]
